FAERS Safety Report 15603086 (Version 3)
Quarter: 2018Q4

REPORT INFORMATION
  Report Type: Spontaneous
  Country: US (occurrence: US)
  Receive Date: 20181109
  Receipt Date: 20181225
  Transmission Date: 20190205
  Serious: Yes (Other)
  Sender: FDA-Public Use
  Company Number: US-AMGEN-USASP2018156700

PATIENT
  Age: 70 Year
  Sex: Female

DRUGS (4)
  1. PROLIA [Suspect]
     Active Substance: DENOSUMAB
     Indication: OSTEOPOROSIS
     Dosage: UNK
     Route: 065
  2. REPATHA [Suspect]
     Active Substance: EVOLOCUMAB
     Indication: BLOOD CHOLESTEROL INCREASED
  3. REPATHA [Suspect]
     Active Substance: EVOLOCUMAB
     Indication: HYPERLIPIDAEMIA
     Dosage: 140 MG, Q2WK
     Route: 065
     Dates: start: 20180926
  4. SIMVASTATIN. [Concomitant]
     Active Substance: SIMVASTATIN
     Dosage: 30 UNK, UNK

REACTIONS (13)
  - Joint dislocation [Unknown]
  - Blood glucose abnormal [Unknown]
  - Dizziness [Unknown]
  - Foot fracture [Unknown]
  - Multiple fractures [Unknown]
  - Wrong technique in product usage process [Unknown]
  - Constipation [Unknown]
  - Neoplasm malignant [Unknown]
  - Visual impairment [Unknown]
  - Rectocele [Unknown]
  - Cognitive disorder [Unknown]
  - Fall [Unknown]
  - Injection site bruising [Unknown]

NARRATIVE: CASE EVENT DATE: 201810
